FAERS Safety Report 21218180 (Version 2)
Quarter: 2022Q3

REPORT INFORMATION
  Report Type: Spontaneous
  Country: TR (occurrence: TR)
  Receive Date: 20220816
  Receipt Date: 20220822
  Transmission Date: 20221027
  Serious: Yes (Other)
  Sender: FDA-Public Use
  Company Number: TR-AMERICAN REGENT INC-2022002307

PATIENT
  Age: 53 Year
  Sex: Female
  Weight: 64 kg

DRUGS (2)
  1. FERINJECT [Suspect]
     Active Substance: FERRIC CARBOXYMALTOSE
     Indication: Iron deficiency
     Dosage: 3 IN 1 WK
     Route: 042
     Dates: start: 2017
  2. FERINJECT [Suspect]
     Active Substance: FERRIC CARBOXYMALTOSE
     Dosage: ONCE A WEEK FOR 3 WEEKS. 3 DOSES IN TOTAL (1 IN 1 WK)
     Route: 042
     Dates: start: 2017, end: 2017

REACTIONS (6)
  - Nasal dryness [Not Recovered/Not Resolved]
  - Throat irritation [Recovered/Resolved]
  - Haemoptysis [Recovered/Resolved]
  - Menopause [Unknown]
  - Dry eye [Not Recovered/Not Resolved]
  - Upper-airway cough syndrome [Not Recovered/Not Resolved]

NARRATIVE: CASE EVENT DATE: 20170101
